FAERS Safety Report 4627108-X (Version None)
Quarter: 2005Q1

REPORT INFORMATION
  Report Type: 
  Country: None (occurrence: None)
  Receive Date: 20050331
  Receipt Date: 20050324
  Transmission Date: 20050727
  Serious: Yes (Other)
  Sender: FDA-Public Use
  Company Number: 2005049636

PATIENT
  Age: 18 Year
  Sex: Male
  Weight: 42.3 kg

DRUGS (1)
  1. NEURONTIN [Suspect]
     Indication: ILL-DEFINED DISORDER
     Dosage: 300 MG, 2 OR 3 CAPSULES EVERY 8 HOURS, ORAL
     Route: 048
     Dates: start: 20050301

REACTIONS (2)
  - CLONIC CONVULSION [None]
  - PARTIAL SEIZURES [None]
